FAERS Safety Report 4902055-4 (Version None)
Quarter: 2006Q1

REPORT INFORMATION
  Report Type: 
  Country: None (occurrence: None)
  Receive Date: 20060206
  Receipt Date: 20050728
  Transmission Date: 20060701
  Serious: Yes (Other)
  Sender: FDA-Public Use
  Company Number: US-GLAXOSMITHKLINE-A0568190A

PATIENT
  Sex: Male

DRUGS (1)
  1. PAXIL [Suspect]
     Indication: DEPRESSION
     Route: 048
     Dates: start: 20021114, end: 20030801

REACTIONS (16)
  - CHILD ABUSE [None]
  - DRUG WITHDRAWAL SYNDROME [None]
  - DYSPHONIA [None]
  - FATIGUE [None]
  - HYPOAESTHESIA [None]
  - INSOMNIA [None]
  - INTENTIONAL SELF-INJURY [None]
  - LACERATION [None]
  - LARYNGEAL DISORDER [None]
  - PANIC DISORDER [None]
  - SEXUAL DYSFUNCTION [None]
  - SLEEP DISORDER [None]
  - SUICIDAL IDEATION [None]
  - SUICIDE ATTEMPT [None]
  - VOCAL CORD PARALYSIS [None]
  - VOCAL CORD POLYP [None]
